FAERS Safety Report 10375004 (Version 2)
Quarter: 2014Q3

REPORT INFORMATION
  Report Type: Spontaneous
  Country: IT (occurrence: IT)
  Receive Date: 20140811
  Receipt Date: 20140813
  Transmission Date: 20150326
  Serious: Yes (Hospitalization)
  Sender: FDA-Public Use
  Company Number: IT-SA-2014SA106151

PATIENT
  Age: 91 Year
  Sex: Female

DRUGS (2)
  1. RIFADIN [Suspect]
     Active Substance: RIFAMPIN
     Indication: STAPHYLOCOCCAL SEPSIS
     Route: 042
     Dates: start: 20140711, end: 20140713
  2. CUBICIN [Suspect]
     Active Substance: DAPTOMYCIN
     Indication: STAPHYLOCOCCAL SEPSIS
     Dosage: FORM- POWDER CONCENTRATE FOR SOLUTION FOR INFUSION
     Route: 042
     Dates: start: 20140710, end: 20140712

REACTIONS (1)
  - Rash morbilliform [Recovered/Resolved]

NARRATIVE: CASE EVENT DATE: 20140712
